FAERS Safety Report 6429075-5 (Version None)
Quarter: 2009Q4

REPORT INFORMATION
  Report Type: 
  Country: None (occurrence: None)
  Receive Date: 20091105
  Receipt Date: 20091030
  Transmission Date: 20100525
  Serious: Yes (Other)
  Sender: FDA-Public Use
  Company Number: US-PFIZER INC-2009285320

PATIENT
  Sex: Female

DRUGS (1)
  1. XALATAN [Suspect]
     Indication: GLAUCOMA
     Dosage: UNK

REACTIONS (3)
  - EYE OPERATION [None]
  - INTRAOCULAR PRESSURE INCREASED [None]
  - VISUAL IMPAIRMENT [None]
